FAERS Safety Report 12641466 (Version 1)
Quarter: 2016Q3

REPORT INFORMATION
  Report Type: Spontaneous
  Country: US (occurrence: US)
  Receive Date: 20160810
  Receipt Date: 20160810
  Transmission Date: 20161109
  Serious: No
  Sender: FDA-Public Use
  Company Number: US-MYLANLABS-2016M1024518

PATIENT
  Sex: Female
  Weight: 104.31 kg

DRUGS (4)
  1. FLUOXETINE [Concomitant]
     Active Substance: FLUOXETINE HYDROCHLORIDE
     Indication: MENTAL DISORDER
     Dosage: UNK
     Dates: end: 2016
  2. XULANE [Suspect]
     Active Substance: ETHINYL ESTRADIOL\NORELGESTROMIN
     Dosage: 150/35 ?G/ QD, QWK FOR 3 WKS THEN OFF FOR 1 WK
     Route: 062
     Dates: start: 2015
  3. LAMICTAL [Concomitant]
     Active Substance: LAMOTRIGINE
     Dosage: UNK
  4. XULANE [Suspect]
     Active Substance: ETHINYL ESTRADIOL\NORELGESTROMIN
     Indication: CONTRACEPTION
     Dosage: 150/35 ?G/ QD, QWK
     Route: 062
     Dates: end: 2015

REACTIONS (2)
  - Treatment noncompliance [Recovered/Resolved]
  - Metrorrhagia [Recovered/Resolved]
